FAERS Safety Report 4988677-3 (Version None)
Quarter: 2006Q2

REPORT INFORMATION
  Report Type: 
  Country: None (occurrence: None)
  Receive Date: 20060502
  Receipt Date: 20051001
  Transmission Date: 20061013
  Serious: No
  Sender: FDA-Public Use
  Company Number: PR-MERCK-0510USA00902

PATIENT
  Age: 57 Year
  Sex: Female
  Weight: 61 kg

DRUGS (6)
  1. VIOXX [Suspect]
     Indication: MYALGIA
     Route: 048
     Dates: start: 20030101, end: 20040101
  2. VIOXX [Suspect]
     Route: 048
     Dates: start: 20030101, end: 20040101
  3. VIOXX [Suspect]
     Route: 048
     Dates: start: 20030101, end: 20040101
  4. VIOXX [Suspect]
     Indication: INTERVERTEBRAL DISC PROTRUSION
     Route: 048
     Dates: start: 20030101, end: 20040101
  5. VIOXX [Suspect]
     Route: 048
     Dates: start: 20030101, end: 20040101
  6. VIOXX [Suspect]
     Route: 048
     Dates: start: 20030101, end: 20040101

REACTIONS (3)
  - CHEST PAIN [None]
  - DEPRESSION [None]
  - HYPERTENSION [None]
